FAERS Safety Report 6207273-3 (Version None)
Quarter: 2009Q2

REPORT INFORMATION
  Report Type: 
  Country: None (occurrence: None)
  Receive Date: 20090522
  Receipt Date: 20090212
  Transmission Date: 20091009
  Serious: No
  Sender: FDA-Public Use
  Company Number: 8042980

PATIENT
  Age: 47 Year
  Sex: Female
  Weight: 47.1 kg

DRUGS (6)
  1. CIMZIA [Suspect]
     Indication: CROHN'S DISEASE
     Dosage: 400 MG SC
     Route: 058
     Dates: start: 20080818
  2. FLORA Q [Concomitant]
  3. VITAMIN B-12 [Concomitant]
  4. KLONOPIN [Concomitant]
  5. ESTRACE [Concomitant]
  6. CELESTA [Concomitant]

REACTIONS (1)
  - NEUTROPHIL COUNT DECREASED [None]
